FAERS Safety Report 19749562 (Version 1)
Quarter: 2021Q3

REPORT INFORMATION
  Report Type: Spontaneous
  Country: US (occurrence: US)
  Receive Date: 20210824
  Receipt Date: 20210824
  Transmission Date: 20211014
  Serious: No
  Sender: FDA-Public Use
  Company Number: None

PATIENT
  Age: 73 Year
  Sex: Male

DRUGS (1)
  1. STELARA [Suspect]
     Active Substance: USTEKINUMAB
     Indication: PSORIASIS
     Dosage: ?          OTHER DOSE:45MG/0.5ML;OTHER FREQUENCY:EVERY 12 WEEKS;?
     Route: 058
     Dates: start: 20210316

REACTIONS (3)
  - Leukoencephalopathy [None]
  - Meningitis [None]
  - Cyst [None]
